FAERS Safety Report 9419150 (Version 1)
Quarter: 2013Q3

REPORT INFORMATION
  Report Type: Spontaneous
  Country: FR (occurrence: FR)
  Receive Date: 20130725
  Receipt Date: 20130725
  Transmission Date: 20140515
  Serious: Yes (Life-Threatening, Hospitalization, Other)
  Sender: FDA-Public Use
  Company Number: FR-ELI_LILLY_AND_COMPANY-FR201307005163

PATIENT
  Age: 58 Year
  Sex: Female

DRUGS (5)
  1. ZYPREXA [Suspect]
     Dosage: UNK, UNKNOWN
     Route: 065
     Dates: start: 201302, end: 20130309
  2. LAROXYL [Suspect]
     Dosage: 4 DF, QD
     Route: 048
  3. SERTRALINE [Suspect]
     Dosage: UNK, UNKNOWN
     Route: 065
     Dates: start: 20130309
  4. ATARAX                                  /CAN/ [Concomitant]
     Dosage: UNK, UNKNOWN
     Route: 065
  5. IMOVANE [Concomitant]
     Dosage: UNK, UNKNOWN
     Route: 065

REACTIONS (5)
  - Hyponatraemia [Recovered/Resolved]
  - Blood osmolarity decreased [Unknown]
  - Suicide attempt [Unknown]
  - Suicidal ideation [Unknown]
  - Persecutory delusion [Unknown]
